FAERS Safety Report 23039609 (Version 1)
Quarter: 2023Q4

REPORT INFORMATION
  Report Type: Spontaneous
  Country: GB (occurrence: GB)
  Receive Date: 20231006
  Receipt Date: 20231006
  Transmission Date: 20240110
  Serious: Yes (Other)
  Sender: FDA-Public Use
  Company Number: GB-MHRA-MED-202309191727593310-FCJLB

PATIENT
  Sex: Female

DRUGS (1)
  1. ATORVASTATIN [Suspect]
     Active Substance: ATORVASTATIN
     Indication: Blood cholesterol
     Dosage: 20MG ON; ;
     Route: 065
     Dates: start: 20230811, end: 20230823

REACTIONS (5)
  - Skin exfoliation [Not Recovered/Not Resolved]
  - Paraesthesia [Recovered/Resolved]
  - Confusional state [Recovered/Resolved]
  - Cold sweat [Recovered/Resolved]
  - Myalgia [Recovering/Resolving]

NARRATIVE: CASE EVENT DATE: 20230821
